FAERS Safety Report 20545107 (Version 1)
Quarter: 2022Q1

REPORT INFORMATION
  Report Type: Spontaneous
  Country: US (occurrence: US)
  Receive Date: 20220303
  Receipt Date: 20220303
  Transmission Date: 20220424
  Serious: No
  Sender: FDA-Public Use
  Company Number: US-ALLERGAN-2115844US

PATIENT
  Age: 63 Year
  Sex: Female

DRUGS (1)
  1. RESTASIS [Suspect]
     Active Substance: CYCLOSPORINE
     Indication: Dry eye
     Dosage: UNK
     Route: 047

REACTIONS (6)
  - Corneal abrasion [Unknown]
  - Visual impairment [Unknown]
  - Superficial injury of eye [Unknown]
  - Eye discharge [Unknown]
  - Product packaging issue [Unknown]
  - Product container issue [Unknown]
